FAERS Safety Report 17116297 (Version 1)
Quarter: 2019Q4

REPORT INFORMATION
  Report Type: Spontaneous
  Country: JP (occurrence: JP)
  Receive Date: 20191205
  Receipt Date: 20191205
  Transmission Date: 20200122
  Serious: No
  Sender: FDA-Public Use
  Company Number: JP-ELI_LILLY_AND_COMPANY-JP201912002260

PATIENT
  Age: 74 Year
  Sex: Female
  Weight: 36 kg

DRUGS (1)
  1. DULOXETINE HYDROCHLORIDE. [Suspect]
     Active Substance: DULOXETINE HYDROCHLORIDE
     Indication: BACK PAIN
     Dosage: 1 DOSAGE FORM, DAILY
     Route: 048
     Dates: start: 20160831, end: 20161018

REACTIONS (1)
  - Hepatic function abnormal [Unknown]
